FAERS Safety Report 6851937-5 (Version None)
Quarter: 2010Q3

REPORT INFORMATION
  Report Type: 
  Country: None (occurrence: None)
  Receive Date: 20100717
  Receipt Date: 20071102
  Transmission Date: 20110219
  Serious: No
  Sender: FDA-Public Use
  Company Number: US-PFIZER INC-2007094574

PATIENT
  Sex: Male
  Weight: 88.2 kg

DRUGS (2)
  1. CHANTIX [Suspect]
     Indication: SMOKING CESSATION THERAPY
     Route: 048
     Dates: start: 20071026
  2. EFFEXOR XR [Concomitant]
     Indication: DEPRESSION

REACTIONS (3)
  - DIARRHOEA [None]
  - FLATULENCE [None]
  - GASTROENTERITIS VIRAL [None]
